FAERS Safety Report 9515174 (Version 1)
Quarter: 2013Q3

REPORT INFORMATION
  Report Type: Spontaneous
  Country: US (occurrence: US)
  Receive Date: 20130911
  Receipt Date: 20130911
  Transmission Date: 20140515
  Serious: Yes (Other)
  Sender: FDA-Public Use
  Company Number: US-TEVA-431403USA

PATIENT
  Sex: Male
  Weight: 88.53 kg

DRUGS (10)
  1. AZILECT [Suspect]
     Indication: PARKINSON^S DISEASE
  2. STALEVO [Concomitant]
  3. PRAMIPEXOLE [Concomitant]
  4. TRIAMTERENE AND HYDROCHLOROTHIAZID [Concomitant]
  5. LIPITOR [Concomitant]
  6. AMANTADINE [Concomitant]
  7. MULTIVITAMIN [Concomitant]
  8. VITAMIN D3 [Concomitant]
  9. EMBREL [Concomitant]
  10. BENTYL [Concomitant]

REACTIONS (7)
  - Hemiparesis [Not Recovered/Not Resolved]
  - Fall [Not Recovered/Not Resolved]
  - Hallucination, visual [Recovered/Resolved]
  - Rotator cuff syndrome [Not Recovered/Not Resolved]
  - Hypoaesthesia [Not Recovered/Not Resolved]
  - Asthenia [Not Recovered/Not Resolved]
  - Laceration [Not Recovered/Not Resolved]
